FAERS Safety Report 12654109 (Version 1)
Quarter: 2016Q3

REPORT INFORMATION
  Report Type: Report from Study
  Country: US (occurrence: US)
  Receive Date: 20160816
  Receipt Date: 20160816
  Transmission Date: 20161109
  Serious: Yes (Hospitalization)
  Sender: FDA-Public Use
  Company Number: US-ROCHE-1813445

PATIENT
  Age: 60 Year
  Sex: Female
  Weight: 87.5 kg

DRUGS (2)
  1. BEVACIZUMAB [Suspect]
     Active Substance: BEVACIZUMAB
     Indication: INVASIVE BREAST CARCINOMA
     Dosage: OVER 30-90 MIN ON DAY 1
     Route: 042
     Dates: start: 20110125
  2. TAMOXIFEN [Suspect]
     Active Substance: TAMOXIFEN
     Indication: INVASIVE BREAST CARCINOMA
     Route: 048

REACTIONS (1)
  - Myelodysplastic syndrome [Recovering/Resolving]

NARRATIVE: CASE EVENT DATE: 20160205
